FAERS Safety Report 6405295-0 (Version None)
Quarter: 2009Q4

REPORT INFORMATION
  Report Type: 
  Country: None (occurrence: None)
  Receive Date: 20091016
  Receipt Date: 20091016
  Transmission Date: 20100525
  Serious: Yes (Other)
  Sender: FDA-Public Use
  Company Number: None

PATIENT
  Sex: Female

DRUGS (1)
  1. ENBREL [Suspect]
     Dosage: 50 MG INJECTION 1 X WKLY SUBCU LAST 6 YEARS
     Route: 058

REACTIONS (3)
  - HERPES ZOSTER [None]
  - INFECTION [None]
  - POST HERPETIC NEURALGIA [None]
